FAERS Safety Report 5710104-9 (Version None)
Quarter: 2008Q2

REPORT INFORMATION
  Report Type: 
  Country: None (occurrence: None)
  Receive Date: 20080418
  Receipt Date: 20071126
  Transmission Date: 20081010
  Serious: No
  Sender: FDA-Public Use
  Company Number: US-ASTRAZENECA-2007UW27036

PATIENT
  Age: 763 Month
  Sex: Female
  Weight: 89.8 kg

DRUGS (4)
  1. METOPROLOL SUCCINATE [Suspect]
     Indication: BLOOD PRESSURE
     Route: 048
     Dates: start: 20070701
  2. LIPITOR [Concomitant]
  3. FEMARA [Concomitant]
  4. DILTIAZEM [Concomitant]

REACTIONS (5)
  - BLOOD POTASSIUM ABNORMAL [None]
  - DIZZINESS [None]
  - FALL [None]
  - NAUSEA [None]
  - VOMITING [None]
